FAERS Safety Report 8766920 (Version 1)
Quarter: 2012Q4

REPORT INFORMATION
  Report Type: 
  Country: CO (occurrence: CO)
  Receive Date: 20120904
  Receipt Date: 20120904
  Transmission Date: 20130627
  Serious: Yes (Other)
  Sender: FDA-Public Use
  Company Number: CO-PFIZER INC-2012212956

PATIENT
  Age: 67 Year
  Sex: Male

DRUGS (5)
  1. LYRICA [Suspect]
     Indication: NEUROPATHY PERIPHERAL
     Dosage: 150 mg, 1x/day
     Route: 048
     Dates: start: 2007
  2. HYPERLIPEN [Concomitant]
     Indication: BLOOD CHOLESTEROL
     Dosage: 100 mg, 1x/day
     Route: 048
     Dates: start: 2007
  3. HYPERLIPEN [Concomitant]
     Indication: BLOOD TRIGLYCERIDES
  4. APROVEL [Concomitant]
     Indication: HYPERTENSION
     Dosage: 300 mg, 1x/day
     Route: 048
     Dates: start: 2004
  5. OMEGA 3/VITAMIN E [Concomitant]
     Dosage: UNK
     Route: 065

REACTIONS (6)
  - Rib fracture [Recovered/Resolved]
  - Gastric ulcer [Not Recovered/Not Resolved]
  - Fall [Recovered/Resolved]
  - Reflux gastritis [Not Recovered/Not Resolved]
  - Throat lesion [Not Recovered/Not Resolved]
  - Condition aggravated [Not Recovered/Not Resolved]
